FAERS Safety Report 21755207 (Version 1)
Quarter: 2022Q4

REPORT INFORMATION
  Report Type: Spontaneous
  Country: US (occurrence: None)
  Receive Date: 20221220
  Receipt Date: 20221220
  Transmission Date: 20230113
  Serious: Yes (Other)
  Sender: FDA-Public Use
  Company Number: None

PATIENT
  Age: 4 Year
  Sex: Female
  Weight: 22.5 kg

DRUGS (3)
  1. LANSOPRAZOLE [Suspect]
     Active Substance: LANSOPRAZOLE
     Indication: Leukaemia
     Dosage: OTHER QUANTITY : 1 TABLET(S);?FREQUENCY : DAILY;?OTHER ROUTE : DISSOLVED IN WATER INTO NGT FEEDING T
     Route: 050
     Dates: start: 20221202, end: 20221220
  2. hydrocortisone 2.5 mg 3 times/day [Concomitant]
  3. Gabapentin 3 ml 3 times/day [Concomitant]

REACTIONS (2)
  - Product preparation issue [None]
  - Product substitution issue [None]

NARRATIVE: CASE EVENT DATE: 20221202
